FAERS Safety Report 5365723-9 (Version None)
Quarter: 2007Q2

REPORT INFORMATION
  Report Type: 
  Country: None (occurrence: None)
  Receive Date: 20070611
  Receipt Date: 20061212
  Transmission Date: 20071010
  Serious: Yes (Hospitalization)
  Sender: FDA-Public Use
  Company Number: USA-2006-0025945

PATIENT
  Age: 54 Year
  Sex: Male

DRUGS (3)
  1. OXYCONTIN [Suspect]
     Indication: SPINAL OSTEOARTHRITIS
     Dosage: 80 MG, Q12H, ORAL
     Route: 048
     Dates: start: 20061116, end: 20061208
  2. ROXICODONE [Suspect]
     Indication: BREAKTHROUGH PAIN
     Dosage: SEE TEXT
     Dates: start: 20061116, end: 20061208
  3. MOBIC [Concomitant]

REACTIONS (1)
  - DRUG WITHDRAWAL SYNDROME [None]
